FAERS Safety Report 17813699 (Version 1)
Quarter: 2020Q2

REPORT INFORMATION
  Report Type: Report from Study
  Country: US (occurrence: US)
  Receive Date: 20200521
  Receipt Date: 20200521
  Transmission Date: 20200714
  Serious: Yes (Hospitalization)
  Sender: FDA-Public Use
  Company Number: US-ACTELION-A-NJ2017-163019

PATIENT
  Age: 57 Year
  Sex: Female
  Weight: 84.81 kg

DRUGS (2)
  1. OPSUMIT [Suspect]
     Active Substance: MACITENTAN
     Indication: PULMONARY HYPERTENSION
     Dosage: 10 MG, QD
     Route: 048
     Dates: start: 20171012, end: 20191130
  2. NIFEDIPINE. [Concomitant]
     Active Substance: NIFEDIPINE

REACTIONS (14)
  - Hypotension [Unknown]
  - Intervertebral disc protrusion [Unknown]
  - Malaise [Unknown]
  - Chest pain [Unknown]
  - Duodenal ulcer [Not Recovered/Not Resolved]
  - Sneezing [Not Recovered/Not Resolved]
  - Hospitalisation [Unknown]
  - Asthenia [Unknown]
  - Rhinorrhoea [Not Recovered/Not Resolved]
  - Non-cardiac chest pain [Recovered/Resolved]
  - Influenza [Unknown]
  - Pleurisy [Unknown]
  - Hypoaesthesia [Unknown]
  - Joint injury [Unknown]

NARRATIVE: CASE EVENT DATE: 20171229
